FAERS Safety Report 7610068-7 (Version None)
Quarter: 2011Q3

REPORT INFORMATION
  Report Type: 
  Country: None (occurrence: None)
  Receive Date: 20110715
  Receipt Date: 20110708
  Transmission Date: 20111222
  Serious: Yes (Hospitalization)
  Sender: FDA-Public Use
  Company Number: US-BIOGENIDEC-2011BI004462

PATIENT
  Age: 59 Year
  Sex: Female

DRUGS (13)
  1. TYSABRI [Suspect]
     Indication: MULTIPLE SCLEROSIS
     Route: 042
     Dates: start: 20070913
  2. COREG [Concomitant]
     Indication: PRODUCT USED FOR UNKNOWN INDICATION
  3. MIRAPEX [Concomitant]
     Indication: PRODUCT USED FOR UNKNOWN INDICATION
  4. NEURONTIN [Concomitant]
     Indication: PRODUCT USED FOR UNKNOWN INDICATION
  5. LISINOPRIL [Concomitant]
     Indication: PRODUCT USED FOR UNKNOWN INDICATION
  6. ASPIRIN [Concomitant]
     Indication: PRODUCT USED FOR UNKNOWN INDICATION
  7. POTASSIUM PHOSPHATES [Concomitant]
     Indication: PRODUCT USED FOR UNKNOWN INDICATION
  8. PROZAC [Concomitant]
     Indication: PRODUCT USED FOR UNKNOWN INDICATION
  9. PROVIGIL [Concomitant]
     Indication: PRODUCT USED FOR UNKNOWN INDICATION
  10. TIGAN [Concomitant]
     Indication: PRODUCT USED FOR UNKNOWN INDICATION
  11. AVONEX [Concomitant]
     Indication: MULTIPLE SCLEROSIS
     Route: 030
  12. NEXIUM [Concomitant]
     Indication: PRODUCT USED FOR UNKNOWN INDICATION
  13. MECLIZINE [Concomitant]
     Indication: PRODUCT USED FOR UNKNOWN INDICATION

REACTIONS (3)
  - FALL [None]
  - LIMB INJURY [None]
  - ANKLE FRACTURE [None]
